FAERS Safety Report 8587734 (Version 5)
Quarter: 2013Q4

REPORT INFORMATION
  Report Type: Spontaneous
  Country: DK (occurrence: DK)
  Receive Date: 20120531
  Receipt Date: 20131016
  Transmission Date: 20140711
  Serious: Yes (Disabling, Other)
  Sender: FDA-Public Use
  Company Number: DK-PFIZER INC-2012129022

PATIENT
  Age: 72 Year
  Sex: Male

DRUGS (12)
  1. CORDARONE [Suspect]
     Indication: TACHYARRHYTHMIA
     Dosage: 400 MG, 3X/DAY
     Route: 048
     Dates: start: 20110110, end: 20110117
  2. CORDARONE [Suspect]
     Dosage: 200 MG, 1X/DAY
     Route: 048
     Dates: start: 20110117, end: 20111122
  3. CORDARONE [Suspect]
     Dosage: UNK
     Route: 048
     Dates: start: 20110110, end: 20111122
  4. DIGOXIN [Concomitant]
     Dosage: UNK
  5. SPIRIVA [Concomitant]
     Dosage: UNK
  6. MAREVAN [Concomitant]
     Dosage: UNK
  7. FURIX [Concomitant]
     Dosage: UNK
  8. TEGRETOL [Concomitant]
     Dosage: UNK
  9. LOSARTAN [Concomitant]
     Dosage: UNK
  10. ONBREZ BREEZHALER [Concomitant]
     Dosage: UNK
  11. SINGULAIR [Concomitant]
     Dosage: UNK
  12. AERIUS [Concomitant]
     Dosage: UNK

REACTIONS (8)
  - Polyneuropathy [Recovering/Resolving]
  - Neuropathy peripheral [Not Recovered/Not Resolved]
  - Neuralgia [Not Recovered/Not Resolved]
  - Myxoedema [Unknown]
  - Hypothyroidism [Recovering/Resolving]
  - Balance disorder [Recovering/Resolving]
  - Sensory disturbance [Unknown]
  - Fatigue [Recovering/Resolving]
